FAERS Safety Report 9908131 (Version 1)
Quarter: 2014Q1

REPORT INFORMATION
  Report Type: Spontaneous
  Country: US (occurrence: None)
  Receive Date: 20140214
  Receipt Date: 20140214
  Transmission Date: 20141002
  Serious: Yes (Other)
  Sender: FDA-Public Use
  Company Number: None

PATIENT
  Age: 18 Year
  Sex: Female

DRUGS (2)
  1. TRAMADOL HCL [Suspect]
  2. MOBIC [Suspect]

REACTIONS (3)
  - Drug dispensing error [None]
  - Product label on wrong product [None]
  - Wrong drug administered [None]
